FAERS Safety Report 17638016 (Version 1)
Quarter: 2020Q2

REPORT INFORMATION
  Report Type: Spontaneous
  Country: US (occurrence: US)
  Receive Date: 20200407
  Receipt Date: 20200407
  Transmission Date: 20200713
  Serious: Yes (Death)
  Sender: FDA-Public Use
  Company Number: None

PATIENT
  Age: 76 Year
  Sex: Female
  Weight: 48.6 kg

DRUGS (1)
  1. YESCARTA [Suspect]
     Active Substance: AXICABTAGENE CILOLEUCEL
     Dosage: ?          OTHER FREQUENCY:ONCE;?
     Route: 042
     Dates: start: 20181029, end: 20181029

REACTIONS (25)
  - Intestinal ischaemia [None]
  - Fall [None]
  - Magnetic resonance imaging brain [None]
  - Gait disturbance [None]
  - Sinusitis [None]
  - Cough [None]
  - White matter lesion [None]
  - Walking aid user [None]
  - Speech disorder [None]
  - Hypoxia [None]
  - Intestinal perforation [None]
  - Urinary retention [None]
  - Malnutrition [None]
  - Dysarthria [None]
  - Hypophagia [None]
  - Vertigo [None]
  - Ataxia [None]
  - Brain stem syndrome [None]
  - Periventricular leukomalacia [None]
  - Disease progression [None]
  - Progressive multifocal leukoencephalopathy [None]
  - Aspiration [None]
  - Hypogeusia [None]
  - Brain stem infarction [None]
  - JC polyomavirus test positive [None]

NARRATIVE: CASE EVENT DATE: 20200315
